FAERS Safety Report 6001476-9 (Version None)
Quarter: 2008Q4

REPORT INFORMATION
  Report Type: 
  Country: None (occurrence: None)
  Receive Date: 20081215
  Receipt Date: 20081210
  Transmission Date: 20090506
  Serious: Yes (Hospitalization)
  Sender: FDA-Public Use
  Company Number: CA-AMGEN-US306779

PATIENT
  Sex: Female

DRUGS (7)
  1. PANITUMUMAB [Suspect]
     Indication: SQUAMOUS CELL CARCINOMA
     Route: 042
     Dates: start: 20080730, end: 20080828
  2. FLUOROURACIL [Suspect]
     Dates: start: 20080730
  3. CISPLATIN [Suspect]
     Dates: start: 20080730
  4. COZAAR [Concomitant]
  5. NORVASC [Concomitant]
  6. NOVASEN [Concomitant]
  7. VITAMINS [Concomitant]

REACTIONS (1)
  - FAECALOMA [None]
